FAERS Safety Report 4970800-8 (Version None)
Quarter: 2006Q2

REPORT INFORMATION
  Report Type: 
  Country: None (occurrence: None)
  Receive Date: 20060406
  Receipt Date: 20060317
  Transmission Date: 20061013
  Serious: Yes (Life-Threatening, Other)
  Sender: FDA-Public Use
  Company Number: GB200602005381

PATIENT
  Age: 28 Year
  Sex: Male
  Weight: 96 kg

DRUGS (1)
  1. HUMULIN N [Suspect]
     Dosage: SUBCUTANEOUS
     Route: 058
     Dates: start: 20060112, end: 20060130

REACTIONS (3)
  - HYPOGLYCAEMIA [None]
  - LOSS OF CONSCIOUSNESS [None]
  - ROAD TRAFFIC ACCIDENT [None]
